FAERS Safety Report 6431412-2 (Version None)
Quarter: 2009Q4

REPORT INFORMATION
  Report Type: 
  Country: None (occurrence: None)
  Receive Date: 20091106
  Receipt Date: 20091028
  Transmission Date: 20100525
  Serious: Yes (Other)
  Sender: FDA-Public Use
  Company Number: PHHY2009HU43900

PATIENT
  Age: 75 Year

DRUGS (1)
  1. OCTREOTIDE ACETATE [Suspect]
     Indication: ACROMEGALY
     Dosage: UNK
     Dates: start: 20020101

REACTIONS (9)
  - BACK PAIN [None]
  - CHOLELITHIASIS [None]
  - EXOSTOSIS [None]
  - HYPERTROPHY [None]
  - MYELOPATHY [None]
  - NERVE ROOT COMPRESSION [None]
  - PARAPARESIS [None]
  - SPINAL COLUMN STENOSIS [None]
  - SPINAL CORD COMPRESSION [None]
